FAERS Safety Report 8477848-X (Version None)
Quarter: 2012Q2

REPORT INFORMATION
  Report Type: 
  Country: None (occurrence: None)
  Receive Date: 20120629
  Receipt Date: 20120622
  Transmission Date: 20120825
  Serious: Yes (Disabling)
  Sender: FDA-Public Use
  Company Number: FR-PFIZER INC-2012150320

PATIENT
  Age: 58 Year
  Sex: Female

DRUGS (3)
  1. CYCLOPHOSPHAMIDE [Suspect]
     Indication: BREAST CANCER
     Dosage: 500 MG/M2, CYCLIC
     Route: 042
     Dates: start: 20020225, end: 20020617
  2. FLUOROURACIL [Suspect]
     Indication: BREAST CANCER
     Dosage: 500 MG/M2, CYCLIC
     Route: 042
     Dates: start: 20020225, end: 20020617
  3. EPIRUBICIN HYDROCHLORIDE [Suspect]
     Indication: BREAST CANCER
     Dosage: 100 MG/M2, CYCLIC
     Route: 042
     Dates: start: 20020225, end: 20020617

REACTIONS (3)
  - MITRAL VALVE INCOMPETENCE [None]
  - CARDIAC FAILURE [None]
  - SYSTOLIC DYSFUNCTION [None]
